FAERS Safety Report 4976892-4 (Version None)
Quarter: 2006Q2

REPORT INFORMATION
  Report Type: 
  Country: None (occurrence: None)
  Receive Date: 20060413
  Receipt Date: 20060404
  Transmission Date: 20061013
  Serious: Yes (Other)
  Sender: FDA-Public Use
  Company Number: 2006047191

PATIENT
  Age: 71 Year
  Sex: Male
  Weight: 92.9874 kg

DRUGS (9)
  1. LIPITOR [Suspect]
     Indication: BLOOD CHOLESTEROL
     Dosage: 10 MG 910 MG, 1 IN 1 D)
     Dates: start: 20050101
  2. TAMSULOSIN HCL [Suspect]
     Indication: PROSTATE EXAMINATION ABNORMAL
     Dosage: (0.4 MG)
     Dates: start: 20050101, end: 20060101
  3. ALLOPURINOL [Concomitant]
  4. ATENOLOL [Concomitant]
  5. ALL OTHER THERAPEUTIC PRODUCTS (ALL OTHER THERAPEUTIC PRODUCTS) [Concomitant]
  6. MULTIVITAMIN [Concomitant]
  7. VITAMIN B COMPLEX CAP [Concomitant]
  8. L-LYSINE (LYSINE) [Concomitant]
  9. ASPIRIN [Concomitant]

REACTIONS (13)
  - BLOOD GLUCOSE INCREASED [None]
  - BLOOD SODIUM INCREASED [None]
  - CATARACT [None]
  - MYALGIA [None]
  - NOCTURIA [None]
  - OCULAR VASCULAR DISORDER [None]
  - OPTIC ISCHAEMIC NEUROPATHY [None]
  - PAIN IN EXTREMITY [None]
  - PROSTATE EXAMINATION ABNORMAL [None]
  - SHOULDER PAIN [None]
  - TREATMENT NONCOMPLIANCE [None]
  - VISION BLURRED [None]
  - VISUAL ACUITY REDUCED [None]
